FAERS Safety Report 24721015 (Version 1)
Quarter: 2024Q4

REPORT INFORMATION
  Report Type: Spontaneous
  Country: US (occurrence: US)
  Receive Date: 20241211
  Receipt Date: 20241211
  Transmission Date: 20250115
  Serious: Yes (Life-Threatening, Hospitalization)
  Sender: MYLAN
  Company Number: US-MYLANLABS-2024M1108193

PATIENT
  Age: 22 Year
  Sex: Male
  Weight: 95.1 kg

DRUGS (19)
  1. HYDROCORTISONE [Suspect]
     Active Substance: HYDROCORTISONE
     Indication: Thyrotoxic crisis
     Dosage: 100 MILLIGRAM, Q8H
     Route: 042
  2. ESMOLOL [Suspect]
     Active Substance: ESMOLOL HYDROCHLORIDE
     Indication: Thyrotoxic crisis
     Dosage: UNK
     Route: 042
  3. PROPRANOLOL [Suspect]
     Active Substance: PROPRANOLOL HYDROCHLORIDE
     Indication: Thyrotoxic crisis
     Dosage: 40 MILLIGRAM, Q8H
     Route: 048
  4. LEVOTHYROXINE [Suspect]
     Active Substance: LEVOTHYROXINE
     Indication: Autoimmune thyroiditis
     Dosage: 75 MICROGRAM, QD
     Route: 048
  5. PROPYLTHIOURACIL [Suspect]
     Active Substance: PROPYLTHIOURACIL
     Indication: Thyrotoxic crisis
     Dosage: 1000 MILLIGRAM,A LOADING DOSE OF ORAL PROPYLTHIOURACIL 1000MG
     Route: 048
  6. PROPYLTHIOURACIL [Suspect]
     Active Substance: PROPYLTHIOURACIL
     Dosage: 250 MILLIGRAM, Q4H
     Route: 048
  7. CHOLESTYRAMINE [Suspect]
     Active Substance: CHOLESTYRAMINE
     Indication: Thyrotoxic crisis
     Dosage: 4 GRAM, BID
     Route: 048
  8. POTASSIUM IODIDE [Suspect]
     Active Substance: POTASSIUM IODIDE
     Indication: Thyrotoxic crisis
     Dosage: FIVE DROPS OF ORAL POTASSIUM IODIDE EVERY 6H  , Q6H
     Route: 048
  9. INSULIN NOS [Suspect]
     Active Substance: INSULIN NOS
     Indication: Thyrotoxic crisis
     Dosage: UNK, INFUSION
     Route: 065
  10. LUGOL [Suspect]
     Active Substance: IODINE\POTASSIUM IODIDE
     Indication: Thyrotoxic crisis
     Dosage: FIVE DROPS OF POTASSIUM-IODIDE/IODINE [LUGOLS] 5% VIA THE GASTRIC TUBE EVERY 6H, Q6H
     Route: 065
  11. LACOSAMIDE [Concomitant]
     Active Substance: LACOSAMIDE
     Indication: Epilepsy
     Dosage: 100 MILLIGRAM, BID
     Route: 048
  12. LACOSAMIDE [Concomitant]
     Active Substance: LACOSAMIDE
     Dosage: 100 MILLIGRAM
     Route: 048
  13. LACOSAMIDE [Concomitant]
     Active Substance: LACOSAMIDE
     Indication: Epilepsy
     Dosage: 200 MILLIGRAM, ADDITIONAL DOSE OF LACOSAMIDE
     Route: 042
  14. LACOSAMIDE [Concomitant]
     Active Substance: LACOSAMIDE
     Dosage: 150 MILLIGRAM, BID
     Route: 042
  15. INSULIN ASPART [Concomitant]
     Active Substance: INSULIN ASPART
     Indication: Type 1 diabetes mellitus
     Dosage: UNK
     Route: 058
  16. LORAZEPAM [Concomitant]
     Active Substance: LORAZEPAM
     Indication: Epilepsy
     Dosage: 2 MILLIGRAM
     Route: 042
  17. MIDAZOLAM [Concomitant]
     Active Substance: MIDAZOLAM
     Indication: Sedation
     Dosage: UNK
     Route: 065
  18. PROPOFOL [Concomitant]
     Active Substance: PROPOFOL
     Indication: Sedation
     Dosage: UNK
     Route: 065
  19. DEXTROSE [Concomitant]
     Active Substance: DEXTROSE MONOHYDRATE
     Indication: Euglycaemic diabetic ketoacidosis
     Dosage: UNK
     Route: 065

REACTIONS (4)
  - Drug ineffective [Unknown]
  - Intentional product misuse [Unknown]
  - Treatment noncompliance [Unknown]
  - Off label use [Unknown]
